FAERS Safety Report 8406955-2 (Version None)
Quarter: 2012Q2

REPORT INFORMATION
  Report Type: 
  Country: None (occurrence: None)
  Receive Date: 20120604
  Receipt Date: 20120523
  Transmission Date: 20120825
  Serious: Yes (Hospitalization)
  Sender: FDA-Public Use
  Company Number: FR-ASTRAZENECA-2012SE33984

PATIENT
  Age: 54 Year
  Sex: Male

DRUGS (5)
  1. NEXIUM [Suspect]
     Route: 048
     Dates: start: 20120223, end: 20120225
  2. TENORMIN [Concomitant]
     Route: 065
  3. PERINDOPRIL ERBUMINE [Concomitant]
  4. EZETIMIBE [Concomitant]
  5. PLAVIX [Concomitant]

REACTIONS (1)
  - DERMATITIS EXFOLIATIVE [None]
